FAERS Safety Report 4690857-1 (Version None)
Quarter: 2005Q2

REPORT INFORMATION
  Report Type: 
  Country: None (occurrence: None)
  Receive Date: 20050614
  Receipt Date: 20050531
  Transmission Date: 20051028
  Serious: Yes (Other)
  Sender: FDA-Public Use
  Company Number: 004978

PATIENT
  Age: 48 Year
  Sex: Female

DRUGS (4)
  1. MEDROXYPROGESTERONE ACETATE [Suspect]
     Dosage: ORAL
     Route: 048
     Dates: end: 20010101
  2. PROVERA [Suspect]
     Dosage: ORAL
     Route: 048
     Dates: end: 20010101
  3. PREMARIN [Suspect]
     Dosage: ORAL
     Route: 048
     Dates: end: 20010101
  4. CYCRIN [Suspect]
     Dosage: ORAL
     Route: 048
     Dates: end: 20010101

REACTIONS (3)
  - BREAST CANCER FEMALE [None]
  - OESTROGEN RECEPTOR ASSAY POSITIVE [None]
  - PROGESTERONE RECEPTOR ASSAY POSITIVE [None]
